FAERS Safety Report 17544565 (Version 1)
Quarter: 2020Q1

REPORT INFORMATION
  Report Type: Spontaneous
  Country: US (occurrence: US)
  Receive Date: 20200316
  Receipt Date: 20200316
  Transmission Date: 20200409
  Serious: Yes (Death, Hospitalization, Other)
  Sender: FDA-Public Use
  Company Number: US-DRREDDYS-USA/USA/20/0120694

PATIENT
  Age: 20 Year
  Sex: Female

DRUGS (5)
  1. LACOSAMIDE. [Suspect]
     Active Substance: LACOSAMIDE
     Indication: SEIZURE
  2. LEVETIRACETAM. [Suspect]
     Active Substance: LEVETIRACETAM
     Indication: SEIZURE
  3. BENZODIAZEPINE [Suspect]
     Active Substance: BENZODIAZEPINE
     Indication: SEIZURE
  4. VALPROATE [Suspect]
     Active Substance: VALPROIC ACID
     Indication: SEIZURE
  5. NICOTINE. [Suspect]
     Active Substance: NICOTINE
     Indication: PRODUCT USED FOR UNKNOWN INDICATION
     Route: 051

REACTIONS (3)
  - Brain injury [Unknown]
  - Hypoxia [Unknown]
  - Death [Fatal]
